FAERS Safety Report 17697542 (Version 1)
Quarter: 2020Q2

REPORT INFORMATION
  Report Type: Spontaneous
  Country: CA (occurrence: CA)
  Receive Date: 20200423
  Receipt Date: 20200423
  Transmission Date: 20200714
  Serious: Yes (Hospitalization, Other)
  Sender: FDA-Public Use
  Company Number: CA-ABBVIE-20K-028-3375559-00

PATIENT
  Age: 32 Year
  Sex: Male

DRUGS (4)
  1. NORVIR [Suspect]
     Active Substance: RITONAVIR
     Indication: HIV INFECTION
     Route: 065
  2. INVIRASE [Suspect]
     Active Substance: SAQUINAVIR MESYLATE
     Indication: HIV INFECTION
     Route: 065
  3. FUSIDIC ACID [Suspect]
     Active Substance: FUSIDIC ACID
     Indication: FURUNCLE
     Route: 048
  4. STAVUDINE. [Concomitant]
     Active Substance: STAVUDINE
     Indication: HIV INFECTION

REACTIONS (8)
  - Vertigo [Recovered/Resolved]
  - Fatigue [Recovered/Resolved]
  - Nausea [Recovered/Resolved]
  - Paraesthesia [Recovered/Resolved]
  - Drug interaction [Recovered/Resolved]
  - Decreased appetite [Recovered/Resolved]
  - Arthralgia [Recovered/Resolved]
  - Jaundice [Recovered/Resolved]
